FAERS Safety Report 11995167 (Version 1)
Quarter: 2016Q1

REPORT INFORMATION
  Report Type: Spontaneous
  Country: US (occurrence: US)
  Receive Date: 20160203
  Receipt Date: 20160203
  Transmission Date: 20160526
  Serious: No
  Sender: FDA-Public Use
  Company Number: US-UCBSA-2015026453

PATIENT
  Sex: Male

DRUGS (1)
  1. KEPPRA XR [Suspect]
     Active Substance: LEVETIRACETAM
     Indication: PRODUCT USED FOR UNKNOWN INDICATION
     Dosage: HIGH DOSES OF LEVETIRACETAM DAILY

REACTIONS (3)
  - Hypoaesthesia oral [Unknown]
  - Dysarthria [Unknown]
  - Weight decreased [Unknown]
